FAERS Safety Report 16644752 (Version 2)
Quarter: 2019Q3

REPORT INFORMATION
  Report Type: Spontaneous
  Country: US (occurrence: US)
  Receive Date: 20190729
  Receipt Date: 20190930
  Transmission Date: 20191004
  Serious: Yes (Other)
  Sender: FDA-Public Use
  Company Number: US-MALLINCKRODT-T201905101

PATIENT
  Age: 66 Year
  Sex: Female

DRUGS (5)
  1. TALTZ [Concomitant]
     Active Substance: IXEKIZUMAB
     Indication: PRODUCT USED FOR UNKNOWN INDICATION
     Dosage: UNK
     Route: 065
  2. LASIX [Suspect]
     Active Substance: FUROSEMIDE
     Dosage: UNK
  3. H.P. ACTHAR [Suspect]
     Active Substance: CORTICOTROPIN
     Indication: MULTIPLE SCLEROSIS
     Dosage: 80 UNITS/1ML, EVERY 3 DAYS/ EVERY 72 HOURS
     Route: 058
     Dates: start: 20171110
  4. H.P. ACTHAR [Suspect]
     Active Substance: CORTICOTROPIN
     Indication: PSORIATIC ARTHROPATHY
     Dosage: 1 ML, EVERY 3 DAYS
     Route: 058
     Dates: start: 20180103
  5. LASIX [Suspect]
     Active Substance: FUROSEMIDE
     Indication: PERIPHERAL SWELLING
     Route: 065

REACTIONS (8)
  - Anaemia [Not Recovered/Not Resolved]
  - Rash [Unknown]
  - Cardiac disorder [Not Recovered/Not Resolved]
  - Pain [Unknown]
  - Peripheral swelling [Recovering/Resolving]
  - Pollakiuria [Unknown]
  - Loss of personal independence in daily activities [Unknown]
  - Multiple sclerosis relapse [Unknown]

NARRATIVE: CASE EVENT DATE: 201906
